FAERS Safety Report 6694775-9 (Version None)
Quarter: 2010Q2

REPORT INFORMATION
  Report Type: 
  Country: None (occurrence: None)
  Receive Date: 20100423
  Receipt Date: 20100416
  Transmission Date: 20101027
  Serious: Yes (Hospitalization)
  Sender: FDA-Public Use
  Company Number: B0649091A

PATIENT
  Sex: Female

DRUGS (2)
  1. ARIXTRA [Suspect]
     Indication: VARICOSE VEIN
     Dosage: 2.5MG PER DAY
     Route: 065
     Dates: start: 20100401, end: 20100409
  2. KARVEZIDE [Concomitant]
     Route: 048

REACTIONS (3)
  - DYSPNOEA [None]
  - OEDEMA [None]
  - TACHYCARDIA [None]
